FAERS Safety Report 4569482-9 (Version None)
Quarter: 2005Q1

REPORT INFORMATION
  Report Type: 
  Country: None (occurrence: None)
  Receive Date: 20050203
  Receipt Date: 20050119
  Transmission Date: 20050727
  Serious: Yes (Death)
  Sender: FDA-Public Use
  Company Number: US-JNJFOC-20040800767

PATIENT
  Sex: Male
  Weight: 64.86 kg

DRUGS (8)
  1. DURAGESIC [Suspect]
     Route: 062
  2. ACTIQ [Suspect]
     Route: 060
  3. ACTIQ [Suspect]
     Route: 060
  4. MORPHINE [Suspect]
  5. CATAPRES [Concomitant]
     Route: 062
  6. ZOFRAN [Concomitant]
     Route: 049
  7. NUTRITIONAL SUPPLEMENT NOS [Concomitant]
     Route: 049
  8. L-ARGININE [Concomitant]
     Route: 049

REACTIONS (7)
  - CORONARY ARTERY ATHEROSCLEROSIS [None]
  - CYSTIC FIBROSIS PANCREATIC [None]
  - MEDICATION ERROR [None]
  - SKIN ULCER [None]
  - THERAPEUTIC AGENT TOXICITY [None]
  - THERAPEUTIC RESPONSE DECREASED [None]
  - THERMAL BURN [None]
